FAERS Safety Report 17672325 (Version 1)
Quarter: 2020Q2

REPORT INFORMATION
  Report Type: Spontaneous
  Country: AU (occurrence: AU)
  Receive Date: 20200415
  Receipt Date: 20200415
  Transmission Date: 20200713
  Serious: Yes (Disabling)
  Sender: FDA-Public Use
  Company Number: AU-AMGEN-AUSSP2020039952

PATIENT
  Age: 69 Year
  Sex: Male

DRUGS (1)
  1. REPATHA [Suspect]
     Active Substance: EVOLOCUMAB
     Indication: TYPE IIA HYPERLIPIDAEMIA
     Dosage: UNK UNK, Q2WK
     Route: 058
     Dates: start: 20190125, end: 20200125

REACTIONS (5)
  - Infection [Recovered/Resolved]
  - Skin irritation [Recovered/Resolved]
  - Respiratory disorder [Recovered/Resolved]
  - Blood glucose increased [Recovered/Resolved]
  - Memory impairment [Recovered/Resolved]
